FAERS Safety Report 7288273-1 (Version None)
Quarter: 2011Q1

REPORT INFORMATION
  Report Type: 
  Country: None (occurrence: None)
  Receive Date: 20110211
  Receipt Date: 20110203
  Transmission Date: 20110831
  Serious: Yes (Death)
  Sender: FDA-Public Use
  Company Number: JP-AMGEN-JPNCT2010005261

PATIENT
  Age: 62 Year
  Sex: Male
  Weight: 60 kg

DRUGS (24)
  1. OXALIPLATIN [Concomitant]
     Indication: COLORECTAL CANCER
     Route: 041
     Dates: start: 20100730
  2. FLUOROURACIL [Concomitant]
     Route: 041
     Dates: start: 20100730
  3. CALCIUM LEVOFOLINATE [Concomitant]
     Indication: COLORECTAL CANCER
     Route: 041
     Dates: start: 20100730
  4. ANTIHISTAMINES [Concomitant]
     Indication: PROPHYLAXIS
     Route: 065
  5. BETAMETHASONE [Concomitant]
     Route: 048
  6. AMLODIN OD [Concomitant]
     Route: 048
  7. FLUOROURACIL [Concomitant]
     Route: 040
     Dates: start: 20100730, end: 20101024
  8. EMEND [Concomitant]
     Route: 048
  9. KYTRIL [Concomitant]
     Route: 042
  10. DECADRON [Concomitant]
     Route: 042
  11. CRESTOR [Concomitant]
     Route: 048
  12. FLUOROURACIL [Concomitant]
     Indication: COLORECTAL CANCER
     Route: 040
     Dates: start: 20100730
  13. FLUOROURACIL [Concomitant]
     Route: 041
     Dates: start: 20100730, end: 20101024
  14. CORTICOSTEROIDS [Concomitant]
     Indication: PROPHYLAXIS
     Route: 065
  15. GASTER D [Concomitant]
     Route: 048
  16. MAINTATE [Concomitant]
     Route: 048
  17. OXALIPLATIN [Concomitant]
     Route: 041
     Dates: start: 20100730, end: 20101024
  18. CALCIUM LEVOFOLINATE [Concomitant]
     Route: 041
     Dates: start: 20100730, end: 20101024
  19. MUCOSTA [Concomitant]
     Route: 048
  20. MYSLEE [Concomitant]
     Route: 048
  21. RESTAMIN [Concomitant]
     Route: 048
  22. KERATINAMIN KOWA OINTMENT [Concomitant]
     Route: 062
  23. PANITUMUMAB [Suspect]
     Indication: COLORECTAL CANCER METASTATIC
     Dosage: 6 MG/KG, Q2WK
     Route: 041
     Dates: start: 20100730, end: 20101022
  24. ITOROL [Concomitant]
     Route: 048

REACTIONS (4)
  - RASH [None]
  - INTERSTITIAL LUNG DISEASE [None]
  - STOMATITIS [None]
  - PARONYCHIA [None]
